FAERS Safety Report 24071158 (Version 1)
Quarter: 2024Q3

REPORT INFORMATION
  Report Type: Report from Study
  Country: DE (occurrence: DE)
  Receive Date: 20240710
  Receipt Date: 20240710
  Transmission Date: 20241016
  Serious: No
  Sender: ROCHE
  Company Number: DE-ROCHE-3448127

PATIENT
  Age: 3 Year
  Sex: Female
  Weight: 15.8 kg

DRUGS (8)
  1. EVRYSDI [Suspect]
     Active Substance: RISDIPLAM
     Indication: Spinal muscular atrophy
     Dosage: LAST DOSE: 03/JUL/2023
     Route: 048
     Dates: start: 20220112
  2. EVRYSDI [Suspect]
     Active Substance: RISDIPLAM
     Dosage: LAST DOSE: 20/NOV/2023, 17/APR/2024
     Route: 048
     Dates: start: 20220112
  3. CHOLECALCIFEROL [Concomitant]
     Active Substance: CHOLECALCIFEROL
     Dates: start: 20230301
  4. POLYETHYLENE GLYCOLS [Concomitant]
     Active Substance: POLYETHYLENE GLYCOLS
     Dates: start: 20191201
  5. FUSIDIC ACID [Concomitant]
     Active Substance: FUSIDIC ACID
     Dates: start: 20221116
  6. PREDNISOLONE [Concomitant]
     Active Substance: PREDNISOLONE
  7. AMBROXOL [Concomitant]
     Active Substance: AMBROXOL
  8. ALBUTEROL [Concomitant]
     Active Substance: ALBUTEROL

REACTIONS (3)
  - Respiratory tract infection [Recovered/Resolved]
  - Pyrexia [Recovered/Resolved]
  - Cough [Recovered/Resolved]

NARRATIVE: CASE EVENT DATE: 20221119
